FAERS Safety Report 10173613 (Version 3)
Quarter: 2014Q2

REPORT INFORMATION
  Report Type: Report from Study
  Country: US (occurrence: US)
  Receive Date: 20140515
  Receipt Date: 20140616
  Transmission Date: 20141212
  Serious: Yes (Other)
  Sender: FDA-Public Use
  Company Number: US-GILEAD-2014-0101943

PATIENT
  Sex: Male

DRUGS (1)
  1. RANOLAZINE [Suspect]
     Indication: ANGINA PECTORIS
     Dosage: 500 MG, UNK
     Route: 065
     Dates: start: 20110913

REACTIONS (8)
  - Stent placement [Unknown]
  - Vascular graft [Unknown]
  - Chest pain [Unknown]
  - Venous occlusion [Unknown]
  - Renal disorder [Unknown]
  - Stress [Unknown]
  - Anxiety [Unknown]
  - Thyroid disorder [Unknown]
